FAERS Safety Report 15218777 (Version 9)
Quarter: 2020Q2

REPORT INFORMATION
  Report Type: Report from Study
  Country: DE (occurrence: DE)
  Receive Date: 20180731
  Receipt Date: 20200521
  Transmission Date: 20200713
  Serious: Yes (Hospitalization)
  Sender: FDA-Public Use
  Company Number: DE-ROCHE-2153470

PATIENT
  Age: 46 Year
  Sex: Female

DRUGS (15)
  1. OCREVUS [Suspect]
     Active Substance: OCRELIZUMAB
     Indication: PRIMARY PROGRESSIVE MULTIPLE SCLEROSIS
     Dosage: SECOND INFUSION ON 08/MAY/2018: 300 MG, 19/NOV/2018: 600 MG, 12/NOV/2019: 600 MG AND CURRENT DOSE: 0
     Route: 042
     Dates: start: 20180423
  2. VESIKUR [Concomitant]
     Active Substance: SOLIFENACIN SUCCINATE
     Route: 065
  3. SERTRALIN [SERTRALINE] [Concomitant]
     Active Substance: SERTRALINE HYDROCHLORIDE
     Dosage: 1-0-0
     Route: 065
  4. DRONABINOL. [Concomitant]
     Active Substance: DRONABINOL
  5. LYRICA [Concomitant]
     Active Substance: PREGABALIN
     Dosage: 1-0-1
     Route: 065
  6. RAMIPRIL. [Concomitant]
     Active Substance: RAMIPRIL
     Dosage: 1-0-1
     Route: 065
  7. SERTRALIN [SERTRALINE] [Concomitant]
     Active Substance: SERTRALINE HYDROCHLORIDE
     Dosage: 1-0-0
     Route: 065
  8. FAMPYRA [Concomitant]
     Active Substance: DALFAMPRIDINE
     Route: 065
  9. BACLOFEN. [Concomitant]
     Active Substance: BACLOFEN
     Dosage: 1-0-1
     Route: 065
  10. INFLUENZA VACCINE [Concomitant]
     Active Substance: INFLUENZA VIRUS VACCINE
     Route: 065
     Dates: start: 20191015
  11. LYRICA [Concomitant]
     Active Substance: PREGABALIN
     Dosage: 3-0-4
     Route: 065
  12. BACLOFEN. [Concomitant]
     Active Substance: BACLOFEN
     Dosage: 1-0-2
     Route: 065
  13. LYRICA [Concomitant]
     Active Substance: PREGABALIN
     Dosage: 1-0-2
     Route: 065
  14. DEKRISTOL [Concomitant]
     Active Substance: CHOLECALCIFEROL
     Route: 065
  15. NOVALGIN (METAMIZOLE SODIUM) [Concomitant]
     Active Substance: METAMIZOLE SODIUM
     Dosage: 1-0-1
     Route: 065

REACTIONS (23)
  - Urinary tract infection [Recovered/Resolved]
  - Dizziness [Recovering/Resolving]
  - Paraesthesia [Not Recovered/Not Resolved]
  - Peripheral coldness [Not Recovered/Not Resolved]
  - Off label use [Unknown]
  - Malaise [Recovered/Resolved]
  - Fall [Unknown]
  - White blood cells urine positive [Recovered/Resolved]
  - Restlessness [Recovering/Resolving]
  - Hot flush [Recovering/Resolving]
  - Muscle tightness [Recovering/Resolving]
  - Sepsis [Recovered/Resolved]
  - Hypoaesthesia [Not Recovered/Not Resolved]
  - Malaise [Recovered/Resolved]
  - Inappropriate schedule of product administration [Unknown]
  - Contusion [Recovered/Resolved]
  - Gastrointestinal infection [Recovered/Resolved]
  - Osteoarthritis [Not Recovered/Not Resolved]
  - Pain in extremity [Not Recovered/Not Resolved]
  - Insomnia [Recovered/Resolved]
  - Nasopharyngitis [Not Recovered/Not Resolved]
  - Fatigue [Recovered/Resolved]
  - Erythema [Recovered/Resolved]

NARRATIVE: CASE EVENT DATE: 20180423
